FAERS Safety Report 4353679-7 (Version None)
Quarter: 2004Q2

REPORT INFORMATION
  Report Type: 
  Country: None (occurrence: None)
  Receive Date: 20040430
  Receipt Date: 20040422
  Transmission Date: 20050107
  Serious: Yes (Hospitalization, Other)
  Sender: FDA-Public Use
  Company Number: 2002UW16093

PATIENT
  Age: 37 Year
  Sex: Female

DRUGS (7)
  1. NEXIUM [Suspect]
     Dosage: TOOK 3-5 PER DAY
     Dates: start: 20021002, end: 20021122
  2. NEURONTIN [Suspect]
     Indication: DEPRESSION
     Dosage: 400 MG TID
  3. ZOCOR [Concomitant]
  4. LASIX [Concomitant]
  5. DIOVAN [Concomitant]
  6. PROTONIX [Concomitant]
  7. CELEXA [Concomitant]

REACTIONS (13)
  - ABDOMINAL PAIN [None]
  - ERUCTATION [None]
  - FATIGUE [None]
  - HEADACHE [None]
  - HOT FLUSH [None]
  - HYPERTENSION [None]
  - MEDICATION ERROR [None]
  - MUSCLE CRAMP [None]
  - NAUSEA [None]
  - OEDEMA [None]
  - OVERDOSE [None]
  - VOMITING [None]
  - WEIGHT INCREASED [None]
